FAERS Safety Report 7710896-3 (Version None)
Quarter: 2011Q3

REPORT INFORMATION
  Report Type: 
  Country: None (occurrence: None)
  Receive Date: 20110825
  Receipt Date: 20110817
  Transmission Date: 20111222
  Serious: Yes (Other)
  Sender: FDA-Public Use
  Company Number: US-ASTRAZENECA-2011SE49569

PATIENT
  Age: 50 Year
  Sex: Female

DRUGS (3)
  1. DEXILANT [Concomitant]
  2. ACIPHEX [Concomitant]
  3. NEXIUM [Suspect]
     Route: 048

REACTIONS (4)
  - ASPIRATION [None]
  - PULMONARY HYPERTENSION [None]
  - LUNG DISORDER [None]
  - DRUG DOSE OMISSION [None]
